FAERS Safety Report 6624988-3 (Version None)
Quarter: 2010Q1

REPORT INFORMATION
  Report Type: 
  Country: None (occurrence: None)
  Receive Date: 20100310
  Receipt Date: 20090922
  Transmission Date: 20100710
  Serious: No
  Sender: FDA-Public Use
  Company Number: US-BIOGENIDEC-2009BI030300

PATIENT
  Sex: Female

DRUGS (3)
  1. AVONEX [Suspect]
     Indication: MULTIPLE SCLEROSIS
     Route: 030
     Dates: start: 20020101
  2. AVONEX [Suspect]
     Route: 030
     Dates: start: 20090501
  3. ALLEGRA [Concomitant]
     Indication: SEASONAL ALLERGY
     Route: 048

REACTIONS (4)
  - ASTHENIA [None]
  - FATIGUE [None]
  - HYPERHIDROSIS [None]
  - PARANASAL SINUS HYPERSECRETION [None]
